FAERS Safety Report 18687048 (Version 1)
Quarter: 2020Q4

REPORT INFORMATION
  Report Type: Report from Study
  Country: None (occurrence: US)
  Receive Date: 20201231
  Receipt Date: 20201231
  Transmission Date: 20210114
  Serious: Yes (Other)
  Sender: FDA-Public Use
  Company Number: US-ABBVIE-20K-163-3710135-00

PATIENT
  Age: 27 Year
  Sex: Male

DRUGS (1)
  1. HUMIRA [Suspect]
     Active Substance: ADALIMUMAB
     Indication: CROHN^S DISEASE
     Route: 058

REACTIONS (5)
  - Obstruction [Recovered/Resolved]
  - Drain placement [Recovered/Resolved]
  - Crohn^s disease [Recovering/Resolving]
  - Food intolerance [Unknown]
  - Pain [Unknown]

NARRATIVE: CASE EVENT DATE: 202011
